FAERS Safety Report 5888911-1 (Version None)
Quarter: 2008Q3

REPORT INFORMATION
  Report Type: 
  Country: None (occurrence: None)
  Receive Date: 20080919
  Receipt Date: 20080916
  Transmission Date: 20090109
  Serious: Yes (Death, Hospitalization)
  Sender: FDA-Public Use
  Company Number: PHEH2008US03022

PATIENT
  Sex: Male
  Weight: 73.015 kg

DRUGS (2)
  1. SANDOSTATIN [Suspect]
     Indication: DIARRHOEA
     Dosage: 50 UG, TID
     Route: 042
  2. DRUG THERAPY NOS [Concomitant]

REACTIONS (3)
  - CHOLECYSTECTOMY [None]
  - GLIOBLASTOMA MULTIFORME [None]
  - VOMITING [None]
